FAERS Safety Report 10595188 (Version 2)
Quarter: 2014Q4

REPORT INFORMATION
  Report Type: Spontaneous
  Country: DE (occurrence: DE)
  Receive Date: 20141120
  Receipt Date: 20141120
  Transmission Date: 20150529
  Serious: Yes (Other)
  Sender: FDA-Public Use
  Company Number: DE-UCBSA-2014013779

PATIENT
  Age: 67 Year
  Sex: Female

DRUGS (2)
  1. LEVETIRACETAM UCB [Suspect]
     Active Substance: LEVETIRACETAM
     Indication: PRODUCT USED FOR UNKNOWN INDICATION
     Dosage: 1000 MG, 2X/DAY (BID)
     Route: 048
     Dates: start: 20140917
  2. LEVETIRACETAM. [Concomitant]
     Active Substance: LEVETIRACETAM
     Indication: PRODUCT USED FOR UNKNOWN INDICATION
     Dosage: UNK
     Dates: start: 20140701, end: 201409

REACTIONS (4)
  - Nausea [Unknown]
  - Diarrhoea [Recovered/Resolved]
  - Cataract [Unknown]
  - Chronic gastritis [Unknown]

NARRATIVE: CASE EVENT DATE: 2014
